FAERS Safety Report 6863054-9 (Version None)
Quarter: 2010Q3

REPORT INFORMATION
  Report Type: 
  Country: None (occurrence: None)
  Receive Date: 20100721
  Receipt Date: 20100714
  Transmission Date: 20110219
  Serious: Yes (Hospitalization)
  Sender: FDA-Public Use
  Company Number: US-MERCK-1007USA01467

PATIENT
  Age: 56 Year
  Sex: Male

DRUGS (7)
  1. DECADRON [Suspect]
     Route: 048
  2. REVLIMID [Concomitant]
     Indication: MULTIPLE MYELOMA
     Route: 048
     Dates: start: 20090701
  3. FUROSEMIDE [Concomitant]
     Route: 048
  4. HYDROCHLOROTHIAZIDE [Concomitant]
     Route: 048
  5. CRESTOR [Concomitant]
     Route: 048
  6. POTASSIUM (UNSPECIFIED) [Concomitant]
     Route: 048
  7. AMLODIPINE [Concomitant]
     Route: 048

REACTIONS (2)
  - HYPERGLYCAEMIA [None]
  - LOSS OF CONSCIOUSNESS [None]
